FAERS Safety Report 6230702-6 (Version None)
Quarter: 2009Q2

REPORT INFORMATION
  Report Type: 
  Country: None (occurrence: None)
  Receive Date: 20090616
  Receipt Date: 20090611
  Transmission Date: 20091009
  Serious: Yes (Other)
  Sender: FDA-Public Use
  Company Number: FR-BRISTOL-MYERS SQUIBB COMPANY-14477590

PATIENT
  Age: 25 Year
  Sex: Male
  Weight: 80 kg

DRUGS (5)
  1. ABILIFY [Suspect]
     Indication: SCHIZOPHRENIA
     Dosage: RECEIVED FOR 2-3 WEEKS
     Route: 048
     Dates: start: 20051114
  2. ABILIFY [Suspect]
     Indication: PSYCHOTIC DISORDER
     Dosage: RECEIVED FOR 2-3 WEEKS
     Route: 048
     Dates: start: 20051114
  3. TERCIAN [Concomitant]
     Indication: ANXIOLYTIC THERAPY
     Route: 048
  4. TERCIAN [Concomitant]
     Indication: SLEEP DISORDER
     Route: 048
  5. XANAX [Concomitant]
     Indication: ANXIOLYTIC THERAPY
     Route: 048

REACTIONS (3)
  - AGGRESSION [None]
  - IMPULSIVE BEHAVIOUR [None]
  - PHYSICAL ASSAULT [None]
